FAERS Safety Report 13495370 (Version 1)
Quarter: 2017Q2

REPORT INFORMATION
  Report Type: Spontaneous
  Country: US (occurrence: US)
  Receive Date: 20170427
  Receipt Date: 20170427
  Transmission Date: 20170830
  Serious: Yes (Hospitalization)
  Sender: FDA-Public Use
  Company Number: None

PATIENT
  Age: 51 Year
  Sex: Male

DRUGS (12)
  1. LANTUS [Concomitant]
     Active Substance: INSULIN GLARGINE
  2. ONDANSETRON [Concomitant]
     Active Substance: ONDANSETRON
  3. LENALIDOMIDE [Concomitant]
     Active Substance: LENALIDOMIDE
  4. DEXAMETHASONE. [Concomitant]
     Active Substance: DEXAMETHASONE
  5. QVAR [Concomitant]
     Active Substance: BECLOMETHASONE DIPROPIONATE
  6. VENTOLIN [Concomitant]
     Active Substance: ALBUTEROL SULFATE
  7. ATORVASTATIN [Concomitant]
     Active Substance: ATORVASTATIN
  8. ASPIRIN. [Concomitant]
     Active Substance: ASPIRIN
  9. FUROSEMIDE. [Concomitant]
     Active Substance: FUROSEMIDE
  10. REVLIMID [Suspect]
     Active Substance: LENALIDOMIDE
     Indication: PLASMA CELL MYELOMA
     Dosage: 10MG DAILY X 14D/21D ORAL
     Route: 048
     Dates: start: 20161224
  11. HUMULIN NOS [Concomitant]
     Active Substance: INSULIN HUMAN
  12. ACYCLOVIR. [Concomitant]
     Active Substance: ACYCLOVIR

REACTIONS (8)
  - Sepsis [None]
  - Chills [None]
  - Respiratory failure [None]
  - Wheezing [None]
  - Productive cough [None]
  - Lower respiratory tract congestion [None]
  - Nasal congestion [None]
  - Dyspnoea [None]

NARRATIVE: CASE EVENT DATE: 20170318
